FAERS Safety Report 6071883-7 (Version None)
Quarter: 2009Q1

REPORT INFORMATION
  Report Type: 
  Country: None (occurrence: None)
  Receive Date: 20090210
  Receipt Date: 20090129
  Transmission Date: 20090719
  Serious: Yes (Other)
  Sender: FDA-Public Use
  Company Number: US-WYE-H08003709

PATIENT
  Sex: Male
  Weight: 75.5 kg

DRUGS (3)
  1. BENEFIX [Suspect]
     Indication: HAEMOPHILIA
     Dosage: 6000 UNIT EVERY 1 DAY;  CUMULATIVE DOSE TO EVENT: 6000 UNIT
     Route: 042
     Dates: start: 20090123, end: 20090123
  2. NONACOG ALFA [Suspect]
     Indication: HAEMOPHILIA
     Dosage: NOT PROVIDED
     Route: 042
     Dates: start: 20040101, end: 20090123
  3. AMBIEN [Concomitant]
     Indication: INSOMNIA

REACTIONS (5)
  - HYPERSENSITIVITY [None]
  - PRODUCT QUALITY ISSUE [None]
  - PRURITUS [None]
  - RASH [None]
  - URTICARIA [None]
